FAERS Safety Report 6989256-9 (Version None)
Quarter: 2010Q3

REPORT INFORMATION
  Report Type: 
  Country: None (occurrence: None)
  Receive Date: 20100916
  Receipt Date: 20091102
  Transmission Date: 20110219
  Serious: Yes (Hospitalization, Other)
  Sender: FDA-Public Use
  Company Number: US-PFIZER INC-2009269182

PATIENT
  Sex: Female
  Weight: 67.12 kg

DRUGS (12)
  1. LYRICA [Suspect]
     Indication: MULTIPLE SCLEROSIS
     Dosage: UNK
     Dates: start: 20050101, end: 20050101
  2. LYRICA [Suspect]
     Indication: FIBROMYALGIA
  3. NEURONTIN [Suspect]
     Indication: MULTIPLE SCLEROSIS
     Dosage: 600 MG, 2X/DAY
     Dates: start: 20050101, end: 20090701
  4. NEURONTIN [Suspect]
     Indication: FIBROMYALGIA
  5. MOBIC [Concomitant]
     Dosage: UNK
  6. ASPIRIN [Concomitant]
     Dosage: DAILY
  7. NORVASC [Concomitant]
     Indication: CARDIAC DISORDER
     Dosage: UNK
  8. TRAZODONE [Concomitant]
     Dosage: UNK
  9. CHROMIUM CHLORIDE [Concomitant]
     Dosage: UNK
  10. SIMVASTATIN [Concomitant]
     Dosage: UNK
  11. HYDROCODONE [Concomitant]
     Dosage: UNK
  12. CALCIUM [Concomitant]
     Dosage: UNK

REACTIONS (5)
  - ARTERIAL RUPTURE [None]
  - CONFUSIONAL STATE [None]
  - GAIT DISTURBANCE [None]
  - MALAISE [None]
  - MYOCARDIAL INFARCTION [None]
